FAERS Safety Report 4652006-5 (Version None)
Quarter: 2005Q2

REPORT INFORMATION
  Report Type: 
  Country: None (occurrence: None)
  Receive Date: 20050504
  Receipt Date: 20040928
  Transmission Date: 20051028
  Serious: Yes (Hospitalization)
  Sender: FDA-Public Use
  Company Number: US-BOEHRINGER INGELHEIM PHARMACEUTICALS, INC.-2004-BP-08872BP

PATIENT
  Sex: Female

DRUGS (10)
  1. COMBIVENT [Suspect]
     Indication: EMPHYSEMA
     Route: 055
     Dates: start: 19940101
  2. COMBIVENT [Suspect]
     Indication: CHRONIC OBSTRUCTIVE PULMONARY DISEASE
  3. ZOCOR [Concomitant]
  4. CARDIZEM [Concomitant]
  5. XANAX [Concomitant]
  6. PLAVIX [Concomitant]
  7. NEXIUM [Concomitant]
  8. DICYCLOMINE [Concomitant]
  9. TYLENOL (CAPLET) [Concomitant]
  10. FOSAMAX [Concomitant]

REACTIONS (5)
  - BACK PAIN [None]
  - MYOCARDIAL INFARCTION [None]
  - NECK PAIN [None]
  - SPINAL OSTEOARTHRITIS [None]
  - THERAPEUTIC RESPONSE DECREASED [None]
